FAERS Safety Report 6377299-8 (Version None)
Quarter: 2009Q3

REPORT INFORMATION
  Report Type: 
  Country: None (occurrence: None)
  Receive Date: 20090925
  Receipt Date: 20090914
  Transmission Date: 20100115
  Serious: Yes (Death)
  Sender: FDA-Public Use
  Company Number: US-WATSON-2009-07533

PATIENT
  Age: 59 Year
  Sex: Female

DRUGS (19)
  1. PREDNISONE (WATSON LABORATORIES) [Suspect]
     Indication: LYMPHOMA
     Dosage: UNK
     Dates: start: 19980101
  2. ETOPOSIDE [Suspect]
     Indication: LYMPHOMA
  3. METHYLPREDNISOLONE ACETATE [Suspect]
     Indication: LYMPHOMA
     Dosage: UNK
     Dates: start: 20080601
  4. RITUXIMAB [Suspect]
     Indication: LYMPHOMA
     Dosage: UNK
     Dates: start: 19980101
  5. RITUXIMAB [Suspect]
     Dosage: UNK
     Dates: start: 20020101
  6. RITUXIMAB [Suspect]
     Dosage: UNK
     Dates: start: 20040101
  7. RITUXIMAB [Suspect]
     Dosage: UNK
     Dates: start: 20080601
  8. VINCRISTINE [Suspect]
     Indication: LYMPHOMA
     Dosage: UNK
     Dates: start: 19980101
  9. CYCLOPHOSPHAMIDE [Suspect]
     Indication: LYMPHOMA
     Dosage: UNK
     Dates: start: 19980101
  10. FLUDARABINE [Suspect]
     Indication: LYMPHOMA
     Dosage: UNK
     Dates: start: 20020101
  11. FLUDARABINE [Suspect]
     Dosage: UNK
     Dates: start: 20040101
  12. MITOXANTRONE [Suspect]
     Indication: LYMPHOMA
     Dosage: UNK
     Dates: start: 20020101
  13. MITOXANTRONE [Suspect]
     Dosage: UNK
     Dates: start: 20040101
  14. DECADRON [Suspect]
     Indication: LYMPHOMA
     Dosage: UNK
     Dates: start: 20020101
  15. DECADRON [Suspect]
     Dosage: UNK
     Dates: start: 20040101
  16. ZEVALIN [Suspect]
     Indication: LYMPHOMA
     Dosage: UNK
     Dates: start: 20040101
  17. ZEVALIN [Suspect]
     Dosage: UNK
     Dates: start: 20070101
  18. CISPLATIN [Suspect]
     Indication: LYMPHOMA
     Dosage: UNK
     Dates: start: 20080601
  19. CYTARABINE [Suspect]
     Indication: LYMPHOMA
     Dosage: UNK
     Dates: start: 20080601

REACTIONS (1)
  - PROGRESSIVE MULTIFOCAL LEUKOENCEPHALOPATHY [None]
